FAERS Safety Report 5423712-X (Version None)
Quarter: 2007Q3

REPORT INFORMATION
  Report Type: 
  Country: None (occurrence: None)
  Receive Date: 20070727
  Receipt Date: 20060320
  Transmission Date: 20080115
  Serious: Yes (Hospitalization)
  Sender: FDA-Public Use
  Company Number: THYM-10904

PATIENT
  Age: 70 Year
  Sex: Male
  Weight: 92 kg

DRUGS (11)
  1. THYMOGLOBULIN [Suspect]
     Indication: LIVER TRANSPLANT
     Dosage: 125 MG QD IV
     Route: 042
     Dates: start: 20060215, end: 20060217
  2. THYMOGLOBULIN [Suspect]
     Indication: LIVER TRANSPLANT
     Dosage: 150 MG QD IV
     Route: 042
     Dates: start: 20060221, end: 20060221
  3. PROGRAF [Concomitant]
  4. CELLCEPT [Concomitant]
  5. MINOCYCLINE HCL [Concomitant]
  6. NYSTATIN [Concomitant]
  7. PROTONIX [Concomitant]
  8. VALGANCICLOVIR HCL [Concomitant]
  9. SYNTHROID [Concomitant]
  10. LANTUS [Concomitant]
  11. NOVOLOG [Concomitant]

REACTIONS (3)
  - DEHYDRATION [None]
  - HYPERKALAEMIA [None]
  - HYPOGLYCAEMIA [None]
